FAERS Safety Report 25859697 (Version 1)
Quarter: 2025Q3

REPORT INFORMATION
  Report Type: Spontaneous
  Country: US (occurrence: US)
  Receive Date: 20250929
  Receipt Date: 20250929
  Transmission Date: 20251020
  Serious: Yes (Death)
  Sender: AMGEN
  Company Number: US-AMGEN-USASP2025191040

PATIENT
  Age: 4 Year
  Sex: Female

DRUGS (3)
  1. RITUXIMAB [Suspect]
     Active Substance: RITUXIMAB
     Indication: Epstein-Barr virus associated lymphoma
     Route: 065
  2. PREDNISONE [Suspect]
     Active Substance: PREDNISONE
     Indication: Epstein-Barr virus associated lymphoma
     Route: 065
  3. Immunoglobulin [Concomitant]
     Route: 040

REACTIONS (4)
  - Epstein-Barr virus associated lymphoma [Fatal]
  - Lymphadenopathy [Unknown]
  - Hepatosplenomegaly [Unknown]
  - Drug ineffective [Unknown]
